FAERS Safety Report 7738740-9 (Version None)
Quarter: 2011Q3

REPORT INFORMATION
  Report Type: 
  Country: None (occurrence: None)
  Receive Date: 20110908
  Receipt Date: 20110907
  Transmission Date: 20111222
  Serious: No
  Sender: FDA-Public Use
  Company Number: US-PFIZER INC-2011209492

PATIENT
  Sex: Female
  Weight: 63.5 kg

DRUGS (3)
  1. CLONAZEPAM [Concomitant]
     Dosage: UNK
  2. LYRICA [Suspect]
     Indication: ANXIETY
     Dosage: 100 MG, 1X/DAY
     Route: 048
     Dates: start: 20110601
  3. METHADONE [Concomitant]
     Dosage: UNK

REACTIONS (3)
  - DRUG INEFFECTIVE [None]
  - SOMNOLENCE [None]
  - WEIGHT INCREASED [None]
